FAERS Safety Report 7894434-0 (Version None)
Quarter: 2011Q4

REPORT INFORMATION
  Report Type: 
  Country: None (occurrence: None)
  Receive Date: 20111105
  Receipt Date: 20111026
  Transmission Date: 20120403
  Serious: Yes (Hospitalization)
  Sender: FDA-Public Use
  Company Number: IT-ASTRAZENECA-2011SE64539

PATIENT
  Age: 13946 Day
  Sex: Female

DRUGS (3)
  1. CITALOPRAM HYDROBROMIDE [Suspect]
     Indication: INTENTIONAL OVERDOSE
     Dosage: 920 MG AS A SINGLE DOSE
     Route: 048
     Dates: start: 20110818, end: 20110818
  2. ALCOHOLIC DRINKS [Concomitant]
  3. SEROQUEL XR [Suspect]
     Indication: INTENTIONAL OVERDOSE
     Dosage: 300 MG TAKEN AS A SINGLE DOSE.
     Route: 048
     Dates: start: 20110818, end: 20110818

REACTIONS (2)
  - SOPOR [None]
  - MULTIPLE DRUG OVERDOSE INTENTIONAL [None]
